FAERS Safety Report 24002590 (Version 1)
Quarter: 2024Q2

REPORT INFORMATION
  Report Type: Report from Study
  Country: US (occurrence: US)
  Receive Date: 20240623
  Receipt Date: 20240623
  Transmission Date: 20240716
  Serious: Yes (Hospitalization)
  Sender: FDA-Public Use
  Company Number: US-JNJFOC-20240648296

PATIENT
  Age: 23 Year
  Sex: Female

DRUGS (15)
  1. SPRAVATO [Suspect]
     Active Substance: ESKETAMINE
     Indication: Depression
     Dosage: 56 MG, TOTAL OF 6 DOSES
     Dates: start: 20230712, end: 20230728
  2. SPRAVATO [Suspect]
     Active Substance: ESKETAMINE
     Dosage: 84 MG, TOTAL OF 1 DOSE
     Dates: start: 20230802, end: 20230802
  3. SPRAVATO [Suspect]
     Active Substance: ESKETAMINE
     Dosage: 56 MG, TOTAL OF 3 DOSES
     Dates: start: 20230804, end: 20230811
  4. SPRAVATO [Suspect]
     Active Substance: ESKETAMINE
     Dosage: 84 MG, TOTAL OF 1 DOSE
     Dates: start: 20230818, end: 20230818
  5. SPRAVATO [Suspect]
     Active Substance: ESKETAMINE
     Dosage: 56 MG, TOTAL OF 1 DOSE
     Dates: start: 20230823, end: 20230823
  6. SPRAVATO [Suspect]
     Active Substance: ESKETAMINE
     Dosage: 84 MG, TOTAL OF 2 DOSE
     Dates: start: 20230825, end: 20230830
  7. SPRAVATO [Suspect]
     Active Substance: ESKETAMINE
     Dosage: 56 MG, TOTAL OF 7 DOSES
     Dates: start: 20230901, end: 20230922
  8. SPRAVATO [Suspect]
     Active Substance: ESKETAMINE
     Dosage: 28 MG, TOTAL OF 19 DOSES
     Dates: start: 20230927, end: 20231208
  9. SPRAVATO [Suspect]
     Active Substance: ESKETAMINE
     Dosage: 84 MG, TOTAL OF 1 DOSE
     Dates: start: 20231229, end: 20231229
  10. SPRAVATO [Suspect]
     Active Substance: ESKETAMINE
     Dosage: 28 MG, TOTAL OF 13 DOSES
     Dates: start: 20240105, end: 20240216
  11. SPRAVATO [Suspect]
     Active Substance: ESKETAMINE
     Dosage: 84 MG, TOTAL OF 1 DOSE
     Dates: start: 20240221, end: 20240221
  12. SPRAVATO [Suspect]
     Active Substance: ESKETAMINE
     Dosage: 28 MG, TOTAL OF 6 DOSES
     Dates: start: 20240223, end: 20240327
  13. SPRAVATO [Suspect]
     Active Substance: ESKETAMINE
     Dosage: 84 MG, TOTAL OF 1 DOSE
     Dates: start: 20240329, end: 20240329
  14. SPRAVATO [Suspect]
     Active Substance: ESKETAMINE
     Dosage: 56 MG, TOTAL OF 1 DOSE
     Dates: start: 20240403, end: 20240403
  15. SPRAVATO [Suspect]
     Active Substance: ESKETAMINE
     Dosage: 28 MG, TOTAL OF 3 DOSES
     Dates: start: 20240405, end: 20240419

REACTIONS (1)
  - Hospitalisation [Unknown]

NARRATIVE: CASE EVENT DATE: 20240401
